FAERS Safety Report 4891263-7 (Version None)
Quarter: 2006Q1

REPORT INFORMATION
  Report Type: 
  Country: None (occurrence: None)
  Receive Date: 20060123
  Receipt Date: 20060120
  Transmission Date: 20060701
  Serious: Yes (Disabling)
  Sender: FDA-Public Use
  Company Number: GBWYE289710JAN06

PATIENT
  Age: 65 Year
  Sex: Male

DRUGS (6)
  1. EFFEXOR XR [Suspect]
     Indication: DEPRESSION
     Dosage: 75 MG 1X PER 1 DAY ORAL
     Route: 048
     Dates: start: 20051001, end: 20060101
  2. OLANZAPINE [Concomitant]
  3. LITHIUM CARBONATE [Concomitant]
  4. THYROXIN T3         (LEVOTHYROXINE SODIUM/LIOTHYRONINE) [Concomitant]
  5. FLUOXETINE [Concomitant]
  6. LIOTHYRONINE SODIUM [Concomitant]

REACTIONS (1)
  - FALL [None]
